FAERS Safety Report 15002003 (Version 1)
Quarter: 2018Q2

REPORT INFORMATION
  Report Type: Spontaneous
  Country: US (occurrence: US)
  Receive Date: 20180612
  Receipt Date: 20180612
  Transmission Date: 20180711
  Serious: No
  Sender: FDA-Public Use
  Company Number: US-SEPTODONT-201704210

PATIENT
  Age: 49 Year
  Sex: Male

DRUGS (5)
  1. SEPTOCAINE AND EPINEPHRINE [Suspect]
     Active Substance: ARTICAINE HYDROCHLORIDE\EPINEPHRINE BITARTRATE
     Indication: LOCAL ANAESTHESIA
     Dosage: 1.75 CARPULES ADMINISTERED IN HEALTHY TISSUES IN 2 DOSES OF SUSPECT DRUG #1, 2, 3, 4, 5, 6, AND/OR 7
     Route: 004
     Dates: start: 20170726, end: 20170726
  2. LIDOCAINE HYDROCHLORIDE 2% WITH EPINEPHRINE 1:100,000 INJECTION [Suspect]
     Active Substance: EPINEPHRINE\LIDOCAINE HYDROCHLORIDE
     Indication: LOCAL ANAESTHESIA
     Dosage: UNKNOWN DOSE ADMINISTERED
     Route: 004
     Dates: start: 20170726, end: 20170726
  3. BENZOCAINE. [Concomitant]
     Active Substance: BENZOCAINE
     Route: 061
     Dates: start: 20170726, end: 20170726
  4. LOSARTAN. [Concomitant]
     Active Substance: LOSARTAN
  5. ACETYLSALICYLIC ACID [Concomitant]
     Active Substance: ASPIRIN

REACTIONS (2)
  - Injection site ulcer [Recovered/Resolved]
  - Injection site pain [Recovered/Resolved]

NARRATIVE: CASE EVENT DATE: 20170727
